FAERS Safety Report 20340508 (Version 3)
Quarter: 2022Q1

REPORT INFORMATION
  Report Type: Spontaneous
  Country: BE (occurrence: BE)
  Receive Date: 20220117
  Receipt Date: 20220322
  Transmission Date: 20220423
  Serious: Yes (Hospitalization)
  Sender: FDA-Public Use
  Company Number: BE-VIIV HEALTHCARE LIMITED-BE2022EME003998

PATIENT
  Age: 47 Year
  Sex: Male
  Weight: 71 kg

DRUGS (4)
  1. VOCABRIA [Suspect]
     Active Substance: CABOTEGRAVIR SODIUM
     Indication: HIV infection
     Dosage: UNK
     Route: 030
     Dates: start: 20220107
  2. RILPIVIRINE [Suspect]
     Active Substance: RILPIVIRINE
     Indication: HIV infection
     Dosage: UNK
     Route: 030
     Dates: start: 20220107
  3. VOCABRIA [Concomitant]
     Active Substance: CABOTEGRAVIR SODIUM
     Indication: HIV infection
     Dosage: UNK
     Route: 048
  4. EDURANT [Concomitant]
     Active Substance: RILPIVIRINE HYDROCHLORIDE
     Indication: HIV infection
     Dosage: UNK
     Route: 048

REACTIONS (2)
  - Urticaria [Recovered/Resolved]
  - Paraesthesia oral [Recovered/Resolved]

NARRATIVE: CASE EVENT DATE: 20220107
